FAERS Safety Report 15138107 (Version 1)
Quarter: 2018Q3

REPORT INFORMATION
  Report Type: Spontaneous
  Country: PT (occurrence: PT)
  Receive Date: 20180713
  Receipt Date: 20180713
  Transmission Date: 20181010
  Serious: Yes (Hospitalization)
  Sender: FDA-Public Use
  Company Number: PT-CONCORDIA PHARMACEUTICALS INC.-E2B_00013604

PATIENT
  Age: 86 Year
  Sex: Female

DRUGS (1)
  1. PREDNISOLONE. [Suspect]
     Active Substance: PREDNISOLONE
     Indication: COGNITIVE DISORDER
     Dosage: DURATION OF DRUG ADMINISTRATION: 4 MONTHS
     Route: 065
     Dates: start: 2017

REACTIONS (4)
  - Cerebrovascular accident [Unknown]
  - Hyperglycaemia [Recovered/Resolved]
  - Off label use [Recovered/Resolved]
  - Chorea [Unknown]
